FAERS Safety Report 5695086-0 (Version None)
Quarter: 2008Q2

REPORT INFORMATION
  Report Type: 
  Country: None (occurrence: None)
  Receive Date: 20080404
  Receipt Date: 20080325
  Transmission Date: 20081010
  Serious: Yes (Hospitalization)
  Sender: FDA-Public Use
  Company Number: CN-GENENTECH-257671

PATIENT
  Age: 28 Year
  Sex: Male

DRUGS (5)
  1. MABTHERA [Suspect]
     Indication: NON-HODGKIN'S LYMPHOMA
     Dosage: UNK, UNK
     Route: 042
     Dates: start: 20080208
  2. CYCLOPHOSPHAMIDE [Concomitant]
     Indication: NON-HODGKIN'S LYMPHOMA
     Dosage: UNK, UNKNOWN
     Route: 065
     Dates: start: 20080201
  3. DOXORUBICIN HCL [Concomitant]
     Indication: NON-HODGKIN'S LYMPHOMA
     Dosage: UNK, UNKNOWN
     Route: 065
     Dates: start: 20080201
  4. PREDNISOLONE [Concomitant]
     Indication: NON-HODGKIN'S LYMPHOMA
     Dosage: UNK, UNKNOWN
     Route: 065
     Dates: start: 20080201
  5. VINCRISTINE [Concomitant]
     Indication: NON-HODGKIN'S LYMPHOMA
     Dosage: UNK, UNKNOWN
     Route: 065
     Dates: start: 20080201

REACTIONS (2)
  - ONCOLOGIC COMPLICATION [None]
  - PLEURAL EFFUSION [None]
